FAERS Safety Report 6419141-2 (Version None)
Quarter: 2009Q4

REPORT INFORMATION
  Report Type: 
  Country: None (occurrence: None)
  Receive Date: 20091029
  Receipt Date: 20091022
  Transmission Date: 20100525
  Serious: Yes (Hospitalization, Other)
  Sender: FDA-Public Use
  Company Number: CA-ABBOTT-09P-028-0604505-00

PATIENT
  Age: 51 Year
  Sex: Male

DRUGS (16)
  1. RITONAVIR SOFT GELATIN CAPSULES [Suspect]
     Indication: HIV INFECTION
     Dates: start: 20030725
  2. RALTEGRAVIR [Suspect]
     Indication: HIV INFECTION
     Route: 048
     Dates: start: 20070928
  3. DARUNAVIR [Suspect]
     Indication: HIV INFECTION
     Route: 065
     Dates: start: 20060419
  4. ENFUVIRTIDE [Suspect]
     Indication: HIV INFECTION
     Dates: start: 20050505
  5. DIDANOSINE [Suspect]
     Indication: HIV INFECTION
     Dates: start: 20030306
  6. TENOFOVIR [Suspect]
     Indication: HIV INFECTION
     Dates: start: 20040707
  7. TAB BLINDED THERAPY [Suspect]
     Indication: HIV INFECTION
     Dates: start: 20060419, end: 20070927
  8. ADVIL [Concomitant]
     Indication: DRUG USE FOR UNKNOWN INDICATION
     Dates: start: 19960401
  9. FUCIDINE CAP [Concomitant]
     Indication: DRUG USE FOR UNKNOWN INDICATION
     Dates: start: 20060419
  10. NEURONTIN [Concomitant]
     Indication: DRUG USE FOR UNKNOWN INDICATION
     Dates: start: 20060415
  11. ESOMEPRAZOLE MAGNESIUM [Concomitant]
     Indication: DRUG USE FOR UNKNOWN INDICATION
     Dates: start: 20051116
  12. SEPTRA DS [Concomitant]
     Indication: DRUG USE FOR UNKNOWN INDICATION
     Dates: start: 19970108
  13. VIAGRA [Concomitant]
     Indication: DRUG USE FOR UNKNOWN INDICATION
     Dates: start: 20050824
  14. ATAZANAVIR [Concomitant]
     Indication: DRUG USE FOR UNKNOWN INDICATION
     Dates: start: 20080327
  15. VITAMINS (UNSPECIFIED) [Concomitant]
     Indication: DRUG USE FOR UNKNOWN INDICATION
     Dates: start: 19800301
  16. ZINC (UNSPECIFIED) [Concomitant]
     Indication: DRUG USE FOR UNKNOWN INDICATION
     Dates: start: 19960301

REACTIONS (31)
  - ARTHRALGIA [None]
  - BRONCHOSPASM [None]
  - COLON CANCER [None]
  - COUGH [None]
  - DIARRHOEA [None]
  - DIZZINESS [None]
  - DRY SKIN [None]
  - DYSURIA [None]
  - ECZEMA [None]
  - ERECTILE DYSFUNCTION [None]
  - FACIAL WASTING [None]
  - FATIGUE [None]
  - FLATULENCE [None]
  - GASTROOESOPHAGEAL REFLUX DISEASE [None]
  - HAEMORRHOIDS [None]
  - HERPES ZOSTER [None]
  - HIV WASTING SYNDROME [None]
  - INSOMNIA [None]
  - LIBIDO DECREASED [None]
  - MOLLUSCUM CONTAGIOSUM [None]
  - NEPHROLITHIASIS [None]
  - NON-CARDIAC CHEST PAIN [None]
  - ORAL CANDIDIASIS [None]
  - PALPITATIONS [None]
  - RECTAL HAEMORRHAGE [None]
  - RENAL CYST [None]
  - SMALL INTESTINAL OBSTRUCTION [None]
  - SYNCOPE [None]
  - THROMBOCYTOPENIA [None]
  - UPPER RESPIRATORY TRACT INFECTION [None]
  - WEIGHT DECREASED [None]
